FAERS Safety Report 12861618 (Version 3)
Quarter: 2016Q4

REPORT INFORMATION
  Report Type: Spontaneous
  Country: US (occurrence: US)
  Receive Date: 20161019
  Receipt Date: 20161103
  Transmission Date: 20170207
  Serious: No
  Sender: FDA-Public Use
  Company Number: US-HORIZON- PRE-0293-2016

PATIENT
  Age: 54 Year
  Sex: Female

DRUGS (8)
  1. WELLBUTRIN [Concomitant]
     Active Substance: BUPROPION HYDROCHLORIDE
  2. OMEPRAZOLE. [Concomitant]
     Active Substance: OMEPRAZOLE
  3. METHOTHREXATE [Concomitant]
     Active Substance: METHOTREXATE SODIUM
  4. HORMONE REPLACEMENT THERAPY [Concomitant]
     Active Substance: UNSPECIFIED INGREDIENT
  5. CELEBREX [Concomitant]
     Active Substance: CELECOXIB
  6. RANITIDINE. [Concomitant]
     Active Substance: RANITIDINE
  7. ACTEMRA INJECTION [Concomitant]
  8. RAYOS [Suspect]
     Active Substance: PREDNISONE
     Indication: POLYMYALGIA RHEUMATICA
     Dosage: INITIAL 3 MG/D INCREASED TO 40 MG/D
     Dates: start: 201606

REACTIONS (3)
  - Vision blurred [Not Recovered/Not Resolved]
  - Acne cystic [Recovered/Resolved]
  - Weight increased [Recovering/Resolving]

NARRATIVE: CASE EVENT DATE: 20161011
